FAERS Safety Report 4762184-5 (Version None)
Quarter: 2005Q3

REPORT INFORMATION
  Report Type: 
  Country: None (occurrence: None)
  Receive Date: 20050906
  Receipt Date: 20050906
  Transmission Date: 20060218
  Serious: Yes (Hospitalization)
  Sender: FDA-Public Use
  Company Number: None

PATIENT
  Age: 66 Year
  Sex: Male
  Weight: 66.2252 kg

DRUGS (1)
  1. RITUXAN [Suspect]
     Indication: NON-HODGKIN'S LYMPHOMA
     Dosage: 700 MG ONCE INTRAVENOUSLY
     Route: 042
     Dates: start: 20041209

REACTIONS (4)
  - NEUTROPENIA [None]
  - PAIN IN EXTREMITY [None]
  - PEMPHIGUS [None]
  - SKIN ULCER [None]
